FAERS Safety Report 21341079 (Version 1)
Quarter: 2022Q3

REPORT INFORMATION
  Report Type: Spontaneous
  Country: US (occurrence: US)
  Receive Date: 20220916
  Receipt Date: 20220916
  Transmission Date: 20221027
  Serious: Yes (Hospitalization, Other)
  Sender: FDA-Public Use
  Company Number: None

PATIENT
  Age: 80 Year
  Sex: Female

DRUGS (5)
  1. ERGOCALCIFEROL [Suspect]
     Active Substance: ERGOCALCIFEROL
     Indication: Basedow^s disease
     Route: 065
  2. CALCIUM [Suspect]
     Active Substance: CALCIUM
     Indication: Basedow^s disease
     Route: 065
  3. LEVOTHYROXINE [Suspect]
     Active Substance: LEVOTHYROXINE
     Indication: Basedow^s disease
     Route: 065
  4. CEPHALEXIN [Concomitant]
     Active Substance: CEPHALEXIN
     Indication: Escherichia infection
     Route: 065
  5. APIXABAN [Concomitant]
     Active Substance: APIXABAN
     Indication: Product used for unknown indication
     Route: 065

REACTIONS (6)
  - Hallucinations, mixed [Unknown]
  - Hypervitaminosis D [Unknown]
  - Hypercalcaemia [Unknown]
  - Acute kidney injury [Unknown]
  - Toxicity to various agents [Unknown]
  - Overdose [Unknown]
